FAERS Safety Report 8474490-1 (Version None)
Quarter: 2012Q2

REPORT INFORMATION
  Report Type: 
  Country: None (occurrence: None)
  Receive Date: 20120628
  Receipt Date: 20120626
  Transmission Date: 20120825
  Serious: Yes (Death)
  Sender: FDA-Public Use
  Company Number: PHHY2012BR032749

PATIENT
  Sex: Male
  Weight: 94 kg

DRUGS (2)
  1. TEGRETOL [Suspect]
     Indication: CONVULSION
     Dosage: 3 DF A DAY (1200 MG DAILY)
     Route: 048
     Dates: start: 20090101
  2. CLONAZEPAM [Concomitant]
     Indication: AGITATION
     Dosage: 30 MG, QD
     Route: 048

REACTIONS (4)
  - ASPIRATION [None]
  - CONVULSION [None]
  - VOMITING [None]
  - ASPHYXIA [None]
